FAERS Safety Report 9015016 (Version 1)
Quarter: 2013Q1

REPORT INFORMATION
  Report Type: Spontaneous
  Country: US (occurrence: None)
  Receive Date: 20130109
  Receipt Date: 20130109
  Transmission Date: 20140127
  Serious: Yes (Hospitalization)
  Sender: FDA-Public Use
  Company Number: None

PATIENT
  Sex: Male
  Weight: 69.8 kg

DRUGS (3)
  1. RIVAROXABAN [Suspect]
     Indication: ATRIAL FIBRILLATION
     Route: 048
     Dates: start: 201209, end: 20121031
  2. ASPIRIN [Suspect]
     Route: 048
  3. METOPROLOL SUCCINATE [Concomitant]

REACTIONS (5)
  - Melaena [None]
  - Vomiting [None]
  - Upper gastrointestinal haemorrhage [None]
  - Hypotension [None]
  - Haemoglobin decreased [None]
